FAERS Safety Report 5652492-8 (Version None)
Quarter: 2008Q1

REPORT INFORMATION
  Report Type: 
  Country: None (occurrence: None)
  Receive Date: 20080306
  Receipt Date: 20080225
  Transmission Date: 20080703
  Serious: Yes (Other)
  Sender: FDA-Public Use
  Company Number: US-JNJFOC-20080206569

PATIENT
  Sex: Female
  Weight: 113.4 kg

DRUGS (16)
  1. FENTANYL TRANSDERMAL SYSTEM [Suspect]
     Route: 062
  2. FENTANYL TRANSDERMAL SYSTEM [Suspect]
     Indication: PAIN
     Route: 062
  3. XANAX [Suspect]
     Indication: NERVOUSNESS
     Route: 048
  4. VICODIN [Concomitant]
     Indication: PAIN
     Dosage: 5/500MG
     Route: 048
  5. TRAZODONE HCL [Concomitant]
     Indication: SLEEP DISORDER
     Route: 048
  6. NORFLEX [Concomitant]
     Indication: MUSCLE DISORDER
     Route: 048
  7. NOVOLOG [Concomitant]
     Indication: DIABETES MELLITUS
     Dosage: 70/ 30
     Route: 058
  8. COZAAR [Concomitant]
     Route: 048
  9. METANX [Concomitant]
     Route: 065
  10. PLAVIX [Concomitant]
     Route: 048
  11. DIAZOXIDE [Concomitant]
     Route: 048
  12. METAPROLOL [Concomitant]
     Indication: BLOOD PRESSURE
     Route: 048
  13. LISINOPRIL [Concomitant]
     Indication: HYPERTENSION
     Route: 048
  14. LIPITOR [Concomitant]
     Indication: BLOOD CHOLESTEROL
     Route: 048
  15. DETROL [Concomitant]
     Indication: HYPERTONIC BLADDER
     Route: 048
  16. XANAX [Concomitant]
     Route: 048

REACTIONS (8)
  - BLOOD GLUCOSE DECREASED [None]
  - CONFUSIONAL STATE [None]
  - MALAISE [None]
  - MYALGIA [None]
  - NERVOUSNESS [None]
  - OVERDOSE [None]
  - PAIN [None]
  - SELF-MEDICATION [None]
